FAERS Safety Report 8387527-5 (Version None)
Quarter: 2012Q2

REPORT INFORMATION
  Report Type: 
  Country: None (occurrence: None)
  Receive Date: 20120525
  Receipt Date: 20120522
  Transmission Date: 20120825
  Serious: Yes (Hospitalization, Other)
  Sender: FDA-Public Use
  Company Number: PHEH2012US009679

PATIENT
  Sex: Female
  Weight: 66 kg

DRUGS (10)
  1. COREG [Concomitant]
     Indication: CARDIAC DISORDER
     Dosage: 20 MG, QD
     Route: 048
  2. WARFARIN SODIUM [Concomitant]
     Indication: ANTIPLATELET THERAPY
     Dosage: UNK UKN, PRN
     Route: 048
  3. PRILOSEC [Concomitant]
     Indication: GASTRIC DISORDER
     Dosage: 20 MG, QD
     Route: 048
  4. MULTI-VITAMINS [Concomitant]
     Dosage: UNK UKN, QD
  5. ALLEGRA [Concomitant]
     Indication: HYPERSENSITIVITY
     Dosage: 180 MG, PRN
     Route: 048
  6. DIOVAN [Suspect]
     Indication: HYPERTENSION
     Dosage: 40 MG, BID
     Route: 048
  7. POTASSIUM CHLORIDE [Concomitant]
     Indication: CARDIAC DISORDER
     Dosage: 20-30 MG, QD
     Route: 048
  8. VITAMIN D [Concomitant]
     Indication: BONE DISORDER
     Dosage: 50000 U, PRN
     Route: 048
  9. DEMADEX [Concomitant]
     Indication: FLUID RETENTION
     Dosage: 10 MG, QD
     Route: 048
  10. ASPIRIN [Concomitant]
     Indication: CARDIAC DISORDER
     Dosage: 81 MG, QD
     Route: 048

REACTIONS (4)
  - BLOOD POTASSIUM DECREASED [None]
  - URINARY TRACT INFECTION [None]
  - ARRHYTHMIA [None]
  - FEAR [None]
